FAERS Safety Report 14381374 (Version 5)
Quarter: 2018Q2

REPORT INFORMATION
  Report Type: Report from Study
  Country: BR (occurrence: BR)
  Receive Date: 20180112
  Receipt Date: 20180629
  Transmission Date: 20180711
  Serious: Yes (Hospitalization, Other)
  Sender: FDA-Public Use
  Company Number: PHHY2018BR001485

PATIENT
  Age: 25 Year
  Sex: Male
  Weight: 43 kg

DRUGS (4)
  1. EXJADE [Suspect]
     Active Substance: DEFERASIROX
     Dosage: 500 MG, QD (ON ONE DAY) AND 1000 MG QD (ON ANOTHER DAY)
     Route: 048
  2. EXJADE [Suspect]
     Active Substance: DEFERASIROX
     Indication: SICKLE CELL ANAEMIA
     Dosage: 750 MG, QD (ON ONE DAY) AND 500 MG QD (ON ANOTHER DAY)
     Route: 048
     Dates: start: 2013
  3. DIPYRONE [Concomitant]
     Active Substance: DIPYRONE
     Indication: PAIN
     Route: 065
  4. EXJADE [Suspect]
     Active Substance: DEFERASIROX
     Dosage: 1000 MG, QD
     Route: 048
     Dates: start: 201802

REACTIONS (22)
  - Liver iron concentration increased [Unknown]
  - Haemoglobin decreased [Unknown]
  - Pneumonia [Recovered/Resolved]
  - Ischaemic stroke [Unknown]
  - Limb discomfort [Unknown]
  - Haematuria [Recovered/Resolved]
  - Pyrexia [Recovered/Resolved]
  - Weight decreased [Not Recovered/Not Resolved]
  - Nausea [Recovered/Resolved]
  - Renal cyst [Not Recovered/Not Resolved]
  - Back pain [Recovered/Resolved]
  - Gait disturbance [Unknown]
  - Serum ferritin increased [Unknown]
  - Motor dysfunction [Unknown]
  - Chest pain [Recovering/Resolving]
  - Oxygen saturation decreased [Unknown]
  - Vomiting [Recovered/Resolved]
  - Liver iron concentration increased [Unknown]
  - Decreased immune responsiveness [Recovered/Resolved]
  - Asthenia [Unknown]
  - Dizziness [Unknown]
  - Haemorrhagic stroke [Recovered/Resolved]

NARRATIVE: CASE EVENT DATE: 2014
